FAERS Safety Report 4879861-8 (Version None)
Quarter: 2006Q1

REPORT INFORMATION
  Report Type: 
  Country: None (occurrence: None)
  Receive Date: 20060111
  Receipt Date: 20060104
  Transmission Date: 20060701
  Serious: Yes (Other)
  Sender: FDA-Public Use
  Company Number: 2006002719

PATIENT
  Age: 56 Year
  Sex: Male
  Weight: 81.1939 kg

DRUGS (2)
  1. LISTERINE ANTISEPTIC MOUTHWASH (MENTHOL, METHYL SALICYLATE, EUCALYPTOL [Suspect]
     Indication: DENTAL DISORDER PROPHYLAXIS
     Dosage: A CAPFUL OFF AND ON, ORAL
     Route: 048
     Dates: start: 20051201, end: 20060101
  2. LEVOTHYROXINE SODIUM [Concomitant]

REACTIONS (5)
  - FATIGUE [None]
  - FEELING ABNORMAL [None]
  - HEART RATE INCREASED [None]
  - METABOLIC DISORDER [None]
  - WEIGHT DECREASED [None]
